FAERS Safety Report 17988144 (Version 3)
Quarter: 2020Q3

REPORT INFORMATION
  Report Type: Report from Study
  Country: None (occurrence: CH)
  Receive Date: 20200707
  Receipt Date: 20200727
  Transmission Date: 20201103
  Serious: Yes (Death, Other)
  Sender: FDA-Public Use
  Company Number: CH-ABBVIE-20K-151-3471787-00

PATIENT
  Sex: Female

DRUGS (3)
  1. DUODOPA [Suspect]
     Active Substance: CARBIDOPA\LEVODOPA
     Indication: PARKINSON^S DISEASE
     Route: 050
     Dates: start: 20170703, end: 20200113
  2. DUODOPA [Suspect]
     Active Substance: CARBIDOPA\LEVODOPA
     Dosage: MD: 4.5ML, CD: 3.9ML/H, CONTINUOUS RATE NIGHT: 2.2ML/H, ED: 2.2ML?24H THERAPY
     Route: 050
     Dates: start: 20200113, end: 20200302
  3. DUODOPA [Suspect]
     Active Substance: CARBIDOPA\LEVODOPA
     Dosage: MD 4.5ML, CD DAY: 4.5ML/H, CONTINUOUS RATE NIGHT: 2.5ML/H, ED: 2.2ML?24H THERAPY
     Route: 050
     Dates: start: 20200302

REACTIONS (3)
  - Urinary tract infection [Not Recovered/Not Resolved]
  - General physical health deterioration [Fatal]
  - Respiratory disorder [Not Recovered/Not Resolved]
